FAERS Safety Report 7202779-2 (Version None)
Quarter: 2010Q4

REPORT INFORMATION
  Report Type: 
  Country: None (occurrence: None)
  Receive Date: 20101220
  Receipt Date: 20101213
  Transmission Date: 20110411
  Serious: Yes (Hospitalization, Other)
  Sender: FDA-Public Use
  Company Number: 2010SP005479

PATIENT
  Age: 27 Year
  Sex: Female
  Weight: 104.3273 kg

DRUGS (2)
  1. NUVARING [Suspect]
     Indication: CONTRACEPTION
     Dosage: QM; VAG
     Route: 067
     Dates: start: 20060101, end: 20060101
  2. DAYQUIL [Suspect]
     Indication: PRODUCT USED FOR UNKNOWN INDICATION

REACTIONS (20)
  - ALCOHOL POISONING [None]
  - BIPOLAR DISORDER [None]
  - CHEST PAIN [None]
  - DEEP VEIN THROMBOSIS [None]
  - DRUG DEPENDENCE [None]
  - DRUG SCREEN POSITIVE [None]
  - DYSPNOEA [None]
  - ENDOMETRITIS [None]
  - HEPATITIS C [None]
  - HYPERTENSION [None]
  - INSOMNIA [None]
  - MARITAL PROBLEM [None]
  - MIDDLE INSOMNIA [None]
  - OVERDOSE [None]
  - PAIN [None]
  - PALPITATIONS [None]
  - PULMONARY EMBOLISM [None]
  - PULMONARY INFARCTION [None]
  - SUICIDE ATTEMPT [None]
  - UTERINE INFECTION [None]
